FAERS Safety Report 5970988-6 (Version None)
Quarter: 2008Q4

REPORT INFORMATION
  Report Type: 
  Country: None (occurrence: None)
  Receive Date: 20081128
  Receipt Date: 20081121
  Transmission Date: 20090506
  Serious: Yes (Death, Hospitalization, Other)
  Sender: FDA-Public Use
  Company Number: PHHY2008CA28856

PATIENT
  Sex: Male

DRUGS (9)
  1. CLOZARIL [Suspect]
     Indication: AGITATION
     Dosage: UNK
     Dates: start: 20021223
  2. CLOZARIL [Suspect]
     Dosage: 25 MG AT 9 AM
     Route: 048
     Dates: start: 20080801
  3. CLOZARIL [Suspect]
     Dosage: 75 MG HS
     Route: 048
     Dates: start: 20081030
  4. SINEMET [Concomitant]
  5. ENTACAPONE [Concomitant]
     Dosage: 200 MG, QID
     Route: 048
  6. RIVASTIGMINE TARTRATE [Concomitant]
     Dosage: 3 MG, BID
     Route: 048
  7. VENLAFAXINE HCL [Concomitant]
     Dosage: 75 MG HS
  8. MEGESTROL ACETATE [Concomitant]
  9. WARFARIN SODIUM [Concomitant]

REACTIONS (4)
  - DEATH [None]
  - DEMENTIA [None]
  - GRAND MAL CONVULSION [None]
  - PARKINSON'S DISEASE [None]
